FAERS Safety Report 25681171 (Version 2)
Quarter: 2025Q3

REPORT INFORMATION
  Report Type: Spontaneous
  Country: US (occurrence: US)
  Receive Date: 20250814
  Receipt Date: 20250829
  Transmission Date: 20251020
  Serious: Yes (Hospitalization)
  Sender: GERON CORP
  Company Number: US-GERON CORPORATION-US-GER-25-000157

PATIENT
  Age: 83 Year
  Sex: Male

DRUGS (2)
  1. RYTELO [Suspect]
     Active Substance: IMETELSTAT SODIUM
     Indication: Product used for unknown indication
     Dosage: 188 MILLIGRAM/KILOGRAM, 4W
     Route: 042
     Dates: start: 20250203
  2. RYTELO [Suspect]
     Active Substance: IMETELSTAT SODIUM
     Dosage: 47 MILLIGRAM/KILOGRAM, 4W
     Route: 042
     Dates: start: 20250721, end: 20250730

REACTIONS (4)
  - Haemoglobin decreased [Unknown]
  - Therapy non-responder [Recovered/Resolved]
  - Drug ineffective [Recovered/Resolved]
  - Treatment failure [Recovered/Resolved]

NARRATIVE: CASE EVENT DATE: 20250203
